FAERS Safety Report 8935822 (Version 5)
Quarter: 2013Q4

REPORT INFORMATION
  Report Type: Report from Study
  Country: PL (occurrence: PL)
  Receive Date: 20121130
  Receipt Date: 20131205
  Transmission Date: 20140711
  Serious: Yes (Hospitalization)
  Sender: FDA-Public Use
  Company Number: PL-BRISTOL-MYERS SQUIBB COMPANY-17160979

PATIENT
  Age: 17 Year
  Sex: Male
  Weight: 93 kg

DRUGS (2)
  1. ARIPIPRAZOLE [Suspect]
     Indication: SCHIZOPHRENIA
     Dosage: 9JUL-2NOV12-117D?INTERR 2-8NOV12?LAST DOSE ON: 26NOV13
     Route: 065
     Dates: start: 20120709
  2. DIAZEPAM [Concomitant]
     Dates: start: 20121030, end: 20121031

REACTIONS (1)
  - Schizophrenia [Not Recovered/Not Resolved]
